FAERS Safety Report 5416957-6 (Version None)
Quarter: 2007Q3

REPORT INFORMATION
  Report Type: 
  Country: None (occurrence: None)
  Receive Date: 20070816
  Receipt Date: 20070808
  Transmission Date: 20080115
  Serious: Yes (Other)
  Sender: FDA-Public Use
  Company Number: US-PFIZER INC-2007066407

PATIENT
  Sex: Male

DRUGS (1)
  1. SU-011,248 [Suspect]
     Dosage: DAILY DOSE:37.5MG

REACTIONS (3)
  - EPISTAXIS [None]
  - HEPATIC ENCEPHALOPATHY [None]
  - THROMBOCYTOPENIA [None]
